FAERS Safety Report 6644542-7 (Version None)
Quarter: 2010Q1

REPORT INFORMATION
  Report Type: 
  Country: None (occurrence: None)
  Receive Date: 20100319
  Receipt Date: 20100319
  Transmission Date: 20100710
  Serious: Yes (Other)
  Sender: FDA-Public Use
  Company Number: None

PATIENT
  Sex: Male

DRUGS (3)
  1. SYNTHROID [Suspect]
     Indication: HYPOTHYROIDISM
     Dosage: SYNTHROID 150MCG 1 TAB QD ORALLY
     Route: 048
     Dates: start: 20100224, end: 20100228
  2. FOLIC ACID (OTC) [Concomitant]
  3. VITAMIN C (OTC) [Concomitant]

REACTIONS (4)
  - ABDOMINAL PAIN [None]
  - ARTHRALGIA [None]
  - CHEST PAIN [None]
  - NIGHT SWEATS [None]
